FAERS Safety Report 8377595-9 (Version None)
Quarter: 2012Q2

REPORT INFORMATION
  Report Type: 
  Country: None (occurrence: None)
  Receive Date: 20120522
  Receipt Date: 20120511
  Transmission Date: 20120825
  Serious: Yes (Disabling, Other)
  Sender: FDA-Public Use
  Company Number: US-JNJFOC-20100703732

PATIENT
  Age: 69 Year
  Sex: Male

DRUGS (6)
  1. RITONAVIR [Interacting]
     Indication: HIV INFECTION
  2. TRUVADA [Concomitant]
     Route: 065
  3. INTELENCE [Suspect]
     Route: 048
     Dates: start: 20080428, end: 20080610
  4. INTELENCE [Suspect]
     Indication: HIV INFECTION
     Route: 048
     Dates: start: 20080610
  5. SAQUINAVIR [Interacting]
     Indication: HIV INFECTION
     Route: 065
  6. RALTEGRAVIR [Concomitant]
     Route: 065

REACTIONS (6)
  - NEUROPATHY PERIPHERAL [None]
  - ATAXIA [None]
  - MUSCULAR WEAKNESS [None]
  - DRUG INEFFECTIVE [None]
  - DRUG INTERACTION [None]
  - OVERDOSE [None]
